FAERS Safety Report 5589276-5 (Version None)
Quarter: 2008Q1

REPORT INFORMATION
  Report Type: 
  Country: None (occurrence: None)
  Receive Date: 20080109
  Receipt Date: 20080109
  Transmission Date: 20080703
  Serious: Yes (Disabling)
  Sender: FDA-Public Use
  Company Number: None

PATIENT
  Age: 71 Year
  Sex: Female
  Weight: 65.7716 kg

DRUGS (2)
  1. LIALDA [Suspect]
     Indication: DIARRHOEA
     Dosage: 2 TABLETS DAILY MOUTH
     Route: 048
     Dates: start: 20071010, end: 20071017
  2. EVISTA [Concomitant]

REACTIONS (1)
  - TINNITUS [None]
